FAERS Safety Report 8294096-7 (Version None)
Quarter: 2012Q2

REPORT INFORMATION
  Report Type: 
  Country: None (occurrence: None)
  Receive Date: 20120418
  Receipt Date: 20120409
  Transmission Date: 20120825
  Serious: Yes (Other)
  Sender: FDA-Public Use
  Company Number: US-JNJFOC-20120404456

PATIENT
  Sex: Male
  Weight: 86.18 kg

DRUGS (14)
  1. FENTANYL-100 [Suspect]
     Route: 062
     Dates: start: 20110101, end: 20110101
  2. SIMVASTATIN [Concomitant]
     Indication: BLOOD CHOLESTEROL INCREASED
     Route: 048
     Dates: start: 20020101
  3. ASPIRIN [Concomitant]
     Indication: CORONARY ARTERIAL STENT INSERTION
     Route: 048
     Dates: start: 20010101
  4. PLAVIX [Concomitant]
     Indication: CORONARY ARTERIAL STENT INSERTION
     Route: 048
     Dates: start: 20020101
  5. XANAX [Concomitant]
     Dosage: 2*0.5MG
     Route: 048
     Dates: start: 20020101
  6. LOPRESSOR [Concomitant]
     Indication: HYPERTENSION
     Route: 048
     Dates: start: 20000101, end: 20111201
  7. NORCO [Concomitant]
     Indication: BREAKTHROUGH PAIN
     Dosage: 10/325MG 2-3 TABLETS DAILY AS NEEDED. NOT TO EXCEED 6 PER DAY
     Route: 048
     Dates: start: 20020101
  8. FENTANYL-100 [Suspect]
     Indication: NEUROPATHY PERIPHERAL
     Route: 062
  9. FENTANYL-100 [Suspect]
     Route: 062
     Dates: start: 20110101
  10. FENTANYL-100 [Suspect]
     Route: 062
  11. XANAX [Concomitant]
     Indication: DEPRESSION
     Route: 048
     Dates: start: 20020101
  12. XANAX [Concomitant]
     Dosage: 2*0.5MG
     Route: 048
     Dates: start: 20020101
  13. XANAX [Concomitant]
     Indication: ANXIETY
     Route: 048
     Dates: start: 20020101
  14. FISH OIL [Concomitant]
     Route: 048
     Dates: start: 20000101

REACTIONS (3)
  - INFECTED SKIN ULCER [None]
  - DRUG INEFFECTIVE [None]
  - PRODUCT QUALITY ISSUE [None]
